FAERS Safety Report 21546879 (Version 6)
Quarter: 2024Q2

REPORT INFORMATION
  Report Type: Spontaneous
  Country: JP (occurrence: JP)
  Receive Date: 20221103
  Receipt Date: 20240613
  Transmission Date: 20240715
  Serious: Yes (Death, Life-Threatening, Hospitalization, Other)
  Sender: FDA-Public Use
  Company Number: JP-ONO-2022JP023667

PATIENT
  Age: 76 Year
  Sex: Male

DRUGS (5)
  1. OPDIVO [Suspect]
     Active Substance: NIVOLUMAB
     Indication: Gastric cancer
     Dosage: 360 MG, USED IN 5 COURSES
     Route: 042
     Dates: start: 20220228, end: 20220513
  2. OXALIPLATIN [Suspect]
     Active Substance: OXALIPLATIN
     Indication: Gastric cancer
     Dosage: FIRST TO FOURTH DOSE
     Dates: start: 20220228
  3. OXALIPLATIN [Suspect]
     Active Substance: OXALIPLATIN
     Dates: start: 202205
  4. TS-1 [Suspect]
     Active Substance: GIMERACIL\OTERACIL POTASSIUM\TEGAFUR
     Indication: Gastric cancer
     Dosage: FIRST TO FOURTH DOSE
     Dates: start: 20220228
  5. TS-1 [Suspect]
     Active Substance: GIMERACIL\OTERACIL POTASSIUM\TEGAFUR
     Dates: start: 202205

REACTIONS (8)
  - Disseminated intravascular coagulation [Fatal]
  - Pulmonary fibrosis [Unknown]
  - Streptococcus test positive [Fatal]
  - Diffuse alveolar damage [Fatal]
  - Septic shock [Recovering/Resolving]
  - Pneumonia bacterial [Fatal]
  - Pneumocystis jirovecii pneumonia [Fatal]
  - Pneumonia [Fatal]
